FAERS Safety Report 6767590-5 (Version None)
Quarter: 2010Q2

REPORT INFORMATION
  Report Type: 
  Country: None (occurrence: None)
  Receive Date: 20100614
  Receipt Date: 20100608
  Transmission Date: 20101027
  Serious: Yes (Death, Hospitalization)
  Sender: FDA-Public Use
  Company Number: PHHY2010CH36992

PATIENT

DRUGS (2)
  1. LEPONEX [Suspect]
     Indication: SCHIZOPHRENIA
     Dosage: 25 MG/DAY
  2. LEPONEX [Suspect]
     Dosage: 250 MG/DAY

REACTIONS (4)
  - BRONCHITIS [None]
  - CARDIAC ARREST [None]
  - DYSPNOEA [None]
  - PNEUMONIA [None]
